FAERS Safety Report 7731671-X (Version None)
Quarter: 2011Q3

REPORT INFORMATION
  Report Type: 
  Country: None (occurrence: None)
  Receive Date: 20110906
  Receipt Date: 20110901
  Transmission Date: 20111222
  Serious: Yes (Other)
  Sender: FDA-Public Use
  Company Number: US-PFIZER INC-2011174920

PATIENT
  Sex: Female
  Weight: 52.154 kg

DRUGS (2)
  1. LOSARTAN [Concomitant]
     Indication: HYPERTENSION
     Dosage: ^100/25MG^ DAILY
  2. LIPITOR [Suspect]
     Indication: BLOOD CHOLESTEROL INCREASED
     Dosage: 10 MG, DAILY
     Route: 048

REACTIONS (1)
  - HEARING IMPAIRED [None]
